FAERS Safety Report 12084895 (Version 2)
Quarter: 2016Q2

REPORT INFORMATION
  Report Type: Report from Study
  Country: US (occurrence: US)
  Receive Date: 20160217
  Receipt Date: 20160503
  Transmission Date: 20160815
  Serious: Yes (Death)
  Sender: FDA-Public Use
  Company Number: US-ASTRAZENECA-2016SE15000

PATIENT
  Age: 30835 Day
  Sex: Male

DRUGS (1)
  1. DALIRESP [Suspect]
     Active Substance: ROFLUMILAST
     Route: 048
     Dates: start: 201601

REACTIONS (5)
  - Hypoacusis [Unknown]
  - Nasopharyngitis [Unknown]
  - Sleep disorder due to general medical condition, insomnia type [Unknown]
  - Influenza like illness [Unknown]
  - Death [Fatal]

NARRATIVE: CASE EVENT DATE: 20160210
